FAERS Safety Report 8144202-X (Version None)
Quarter: 2012Q1

REPORT INFORMATION
  Report Type: 
  Country: None (occurrence: None)
  Receive Date: 20120217
  Receipt Date: 20120207
  Transmission Date: 20120608
  Serious: Yes (Death, Disabling)
  Sender: FDA-Public Use
  Company Number: GB-MPIJNJ-2011-05210

PATIENT

DRUGS (10)
  1. ATORVASTATIN [Concomitant]
  2. MST                                /00036302/ [Concomitant]
     Dosage: 10 MG, UNK
     Dates: start: 20110501, end: 20110922
  3. PARACETAMOL [Concomitant]
     Indication: PAIN
  4. BISOPROLOL FUMARATE [Concomitant]
  5. VELCADE [Suspect]
     Indication: MULTIPLE MYELOMA
     Dosage: 2.7 MG, UNK
     Route: 042
     Dates: start: 20110912, end: 20110922
  6. DEXAMETHASONE [Concomitant]
     Indication: MULTIPLE MYELOMA
     Dosage: 20 MG, UNK
     Dates: start: 20110912, end: 20110914
  7. GLICLAZIDE [Concomitant]
  8. MST                                /00036302/ [Concomitant]
     Indication: PAIN
     Dosage: 100 MG, UNK
     Dates: start: 20110501, end: 20110922
  9. ORAMORPH SR [Concomitant]
     Indication: PAIN
     Dosage: UNK
     Dates: end: 20110922
  10. ZOLEDRONOC ACID [Concomitant]
     Indication: OSTEOPOROSIS
     Dosage: UNK
     Dates: start: 20110912, end: 20110922

REACTIONS (3)
  - DISEASE PROGRESSION [None]
  - PNEUMONIA [None]
  - PAIN [None]
